FAERS Safety Report 4280688-9 (Version None)
Quarter: 2004Q1

REPORT INFORMATION
  Report Type: 
  Country: None (occurrence: None)
  Receive Date: 20040127
  Receipt Date: 20040114
  Transmission Date: 20041129
  Serious: Yes (Death, Hospitalization)
  Sender: FDA-Public Use
  Company Number: 04P-163-0247515-00

PATIENT
  Age: 52 Year
  Sex: Male

DRUGS (6)
  1. NORVIR [Suspect]
     Indication: HIV INFECTION
     Dosage: 100 MG, 2 IN 1 D, PER ORAL
     Route: 048
     Dates: start: 20010404, end: 20010424
  2. TIPRANAVIR [Concomitant]
  3. STAVUDINE [Concomitant]
  4. DIDANOSINE [Concomitant]
  5. NEVIRAPINE [Concomitant]
  6. SERTRALINE HCL [Concomitant]

REACTIONS (18)
  - ABDOMEN SCAN NORMAL [None]
  - ANOREXIA [None]
  - ASTHENIA [None]
  - BRAIN STEM INFARCTION [None]
  - CARDIAC ARREST [None]
  - DEHYDRATION [None]
  - DEPRESSED LEVEL OF CONSCIOUSNESS [None]
  - DYSPNOEA [None]
  - FLANK PAIN [None]
  - FOOD INTOLERANCE [None]
  - HAEMODIALYSIS [None]
  - LACTIC ACIDOSIS [None]
  - LIVER FUNCTION TEST ABNORMAL [None]
  - MIOSIS [None]
  - NAUSEA [None]
  - RENAL FAILURE ACUTE [None]
  - RESPIRATORY DISTRESS [None]
  - WHITE BLOOD CELL COUNT INCREASED [None]
